FAERS Safety Report 6423917-5 (Version None)
Quarter: 2009Q4

REPORT INFORMATION
  Report Type: 
  Country: None (occurrence: None)
  Receive Date: 20091030
  Receipt Date: 20091030
  Transmission Date: 20100525
  Serious: Yes (Death)
  Sender: FDA-Public Use
  Company Number: None

PATIENT
  Age: 76 Year
  Sex: Male
  Weight: 106 kg

DRUGS (11)
  1. ALLOPURINOL [Suspect]
     Indication: GOUT
     Dosage: 300MG ONCE DAILY PO
     Route: 048
     Dates: start: 20090915, end: 20091009
  2. LIPITOR [Concomitant]
  3. CARDURA [Concomitant]
  4. LASIX [Concomitant]
  5. POTASSIUM CHLORIDE [Concomitant]
  6. COLCHICINE [Concomitant]
  7. SYNTHROID [Concomitant]
  8. COUMADIN [Concomitant]
  9. ALDACTONE [Concomitant]
  10. COREG [Concomitant]
  11. AZULFIDINE [Concomitant]

REACTIONS (25)
  - CARDIAC ARREST [None]
  - COAGULOPATHY [None]
  - DELIRIUM [None]
  - DISSEMINATED INTRAVASCULAR COAGULATION [None]
  - HAEMOLYTIC URAEMIC SYNDROME [None]
  - HALLUCINATION [None]
  - HENOCH-SCHONLEIN PURPURA [None]
  - HYPOTENSION [None]
  - INTERNATIONAL NORMALISED RATIO INCREASED [None]
  - LEUKOCYTOSIS [None]
  - METABOLIC ACIDOSIS [None]
  - MULTI-ORGAN FAILURE [None]
  - NOSOCOMIAL INFECTION [None]
  - PNEUMONIA [None]
  - PSYCHOTIC DISORDER [None]
  - PYREXIA [None]
  - RENAL FAILURE ACUTE [None]
  - RENAL TUBULAR NECROSIS [None]
  - RESPIRATORY FAILURE [None]
  - SEPSIS [None]
  - STEVENS-JOHNSON SYNDROME [None]
  - THROMBOCYTOPENIC PURPURA [None]
  - TOXIC EPIDERMAL NECROLYSIS [None]
  - TUBULOINTERSTITIAL NEPHRITIS [None]
  - VENTRICULAR FIBRILLATION [None]
